FAERS Safety Report 5066559-9 (Version None)
Quarter: 2006Q3

REPORT INFORMATION
  Report Type: 
  Country: None (occurrence: None)
  Receive Date: 20060801
  Receipt Date: 20060721
  Transmission Date: 20061208
  Serious: Yes (Other)
  Sender: FDA-Public Use
  Company Number: BR-ABBOTT-06P-020-0338870-00

PATIENT
  Age: 36 Year
  Sex: Female

DRUGS (4)
  1. DEPAKOTE [Suspect]
     Indication: BIPOLAR DISORDER
     Route: 048
     Dates: start: 20040101, end: 20050101
  2. DEPAKOTE [Suspect]
     Route: 048
     Dates: start: 20050101
  3. FLUOXETINE [Concomitant]
     Indication: BIPOLAR DISORDER
     Route: 048
     Dates: end: 20050101
  4. NOT REPORTED BIPOLAR MEDICATION [Concomitant]
     Indication: BIPOLAR DISORDER
     Route: 048

REACTIONS (1)
  - ABORTION SPONTANEOUS [None]
